FAERS Safety Report 10160923 (Version 1)
Quarter: 2014Q2

REPORT INFORMATION
  Report Type: Spontaneous
  Country: US (occurrence: None)
  Receive Date: 20140507
  Receipt Date: 20140507
  Transmission Date: 20141212
  Serious: No
  Sender: FDA-Public Use
  Company Number: None

PATIENT
  Age: 56 Year
  Sex: Female
  Weight: 93.9 kg

DRUGS (1)
  1. ALPRAZOLAM 0.5 MG PUREPAC [Suspect]
     Dosage: 0.5 MG 1 PO TID PO
     Route: 048

REACTIONS (3)
  - Drug ineffective [None]
  - Product substitution issue [None]
  - Panic attack [None]
